FAERS Safety Report 5287275-4 (Version None)
Quarter: 2007Q2

REPORT INFORMATION
  Report Type: 
  Country: None (occurrence: None)
  Receive Date: 20070404
  Receipt Date: 20070326
  Transmission Date: 20071010
  Serious: Yes (Hospitalization, Other)
  Sender: FDA-Public Use
  Company Number: US-PFIZER INC-2007024851

PATIENT
  Age: 34 Year
  Sex: Female

DRUGS (3)
  1. GENOTROPIN [Suspect]
     Indication: HYPOPITUITARISM
  2. SYNTHROID [Concomitant]
  3. HYDROCORTISONE [Concomitant]

REACTIONS (5)
  - ANOREXIA [None]
  - CONVULSION [None]
  - FATIGUE [None]
  - HEADACHE [None]
  - INSOMNIA [None]
